FAERS Safety Report 17648938 (Version 1)
Quarter: 2020Q2

REPORT INFORMATION
  Report Type: Spontaneous
  Country: FI (occurrence: FI)
  Receive Date: 20200409
  Receipt Date: 20200409
  Transmission Date: 20200713
  Serious: Yes (Other)
  Sender: FDA-Public Use
  Company Number: FI-009507513-2004FIN001396

PATIENT
  Sex: Female

DRUGS (1)
  1. SINEMET [Suspect]
     Active Substance: CARBIDOPA\LEVODOPA
     Indication: PARKINSON^S DISEASE
     Dosage: 1 DOSAGE FORM, UNK
     Route: 048

REACTIONS (4)
  - Feeling abnormal [Unknown]
  - Therapeutic response changed [Unknown]
  - Parkinson^s disease [Unknown]
  - Manufacturing materials issue [Unknown]

NARRATIVE: CASE EVENT DATE: 202003
